FAERS Safety Report 16308416 (Version 1)
Quarter: 2019Q2

REPORT INFORMATION
  Report Type: Spontaneous
  Country: US (occurrence: US)
  Receive Date: 20190514
  Receipt Date: 20190514
  Transmission Date: 20190711
  Serious: No
  Sender: FDA-Public Use
  Company Number: US-VERTEX PHARMACEUTICALS-2019-004313

PATIENT
  Sex: Male
  Weight: 52 kg

DRUGS (3)
  1. SYMDEKO [Suspect]
     Active Substance: IVACAFTOR\TEZACAFTOR
     Indication: CYSTIC FIBROSIS
     Dosage: TEZACAFTOR 100 MG, IVACAFTOR 150 MG QAM; IVACAFTOR 150 MG QPM
     Route: 048
     Dates: start: 20180108
  2. SALINE                             /00075401/ [Suspect]
     Active Substance: SODIUM CHLORIDE
     Indication: PRODUCT USED FOR UNKNOWN INDICATION
     Route: 045
  3. CAYSTON [Concomitant]
     Active Substance: AZTREONAM

REACTIONS (1)
  - Epistaxis [Unknown]
